FAERS Safety Report 5523268-7 (Version None)
Quarter: 2007Q4

REPORT INFORMATION
  Report Type: 
  Country: None (occurrence: None)
  Receive Date: 20071121
  Receipt Date: 20071112
  Transmission Date: 20080405
  Serious: Yes (Hospitalization)
  Sender: FDA-Public Use
  Company Number: PHHO2007NL18759

PATIENT
  Age: 28 Year
  Sex: Male
  Weight: 71 kg

DRUGS (1)
  1. EXJADE [Suspect]
     Indication: BLOOD IRON INCREASED
     Dosage: UNK, UNK
     Route: 048

REACTIONS (7)
  - ANURIA [None]
  - CALCULUS URETERIC [None]
  - ENTEROCOCCAL SEPSIS [None]
  - HAEMATURIA [None]
  - NEPHROLITHIASIS [None]
  - PAIN [None]
  - PYREXIA [None]
